FAERS Safety Report 6237881-5 (Version None)
Quarter: 2009Q2

REPORT INFORMATION
  Report Type: 
  Country: None (occurrence: None)
  Receive Date: 20090620
  Receipt Date: 20090608
  Transmission Date: 20091009
  Serious: No
  Sender: FDA-Public Use
  Company Number: JP-MYLANLABS-2009S1010237

PATIENT
  Age: 56 Year
  Sex: Male
  Weight: 58 kg

DRUGS (4)
  1. CLARITHROMYCIN [Suspect]
     Dates: start: 20030601, end: 20050101
  2. CLARITHROMYCIN [Suspect]
     Dates: start: 20060101, end: 20060101
  3. ITRACONAZOLE [Suspect]
     Dates: start: 20030601, end: 20050101
  4. ITRACONAZOLE [Suspect]
     Dates: start: 20060101, end: 20060101

REACTIONS (2)
  - BRONCHOPULMONARY ASPERGILLOSIS ALLERGIC [None]
  - PULMONARY GRANULOMA [None]
